FAERS Safety Report 6410718-7 (Version None)
Quarter: 2009Q4

REPORT INFORMATION
  Report Type: 
  Country: None (occurrence: None)
  Receive Date: 20091022
  Receipt Date: 20091012
  Transmission Date: 20100525
  Serious: Yes (Hospitalization, Other)
  Sender: FDA-Public Use
  Company Number: US-TYCO HEALTHCARE/MALLINCKRODT-T200901615

PATIENT
  Sex: Female

DRUGS (31)
  1. OPTIMARK [Suspect]
     Indication: NUCLEAR MAGNETIC RESONANCE IMAGING
     Dosage: 15 ML, SINGLE
     Dates: start: 20060118, end: 20060118
  2. OPTIMARK [Suspect]
     Dosage: 12 ML, SINGLE
     Dates: start: 20060316, end: 20060316
  3. OPTIMARK [Suspect]
     Dosage: 6 ML, SINGLE
     Dates: start: 20060420, end: 20060420
  4. OPTIMARK [Suspect]
     Dosage: 12 ML, SINGLE
     Dates: start: 20060614, end: 20060614
  5. OPTIMARK [Suspect]
     Dosage: 10 ML, SINGLE
     Dates: start: 20060905, end: 20060905
  6. GADOLINIUM [Suspect]
     Indication: NUCLEAR MAGNETIC RESONANCE IMAGING
     Dosage: UNK
     Dates: start: 20040409, end: 20040409
  7. GADOLINIUM [Suspect]
     Dosage: UNK
     Dates: start: 20040607, end: 20040607
  8. GADOLINIUM [Suspect]
     Dosage: UNK
     Dates: start: 20040720, end: 20040720
  9. NOVOLOG [Concomitant]
     Dosage: VIA INSULIN PUMP
  10. SYNTHROID [Concomitant]
     Dosage: 0.1 MG, QD (IN AM)
  11. ASPIRIN [Concomitant]
     Dosage: 81 MG, QD (QAM)
  12. NEXIUM [Concomitant]
     Dosage: 40 MG, BID (ONE IN AM, ONE AT NIGHT)
  13. REGLAN [Concomitant]
     Dosage: 10 MG, ONE HOUR A.C
  14. FOLBEE                             /01502401/ [Concomitant]
     Dosage: 5 MG, QD
  15. FOSRENOL [Concomitant]
     Dosage: 2000 MG, BID WITH MEALS
  16. PHOSLO [Concomitant]
     Dosage: 2 TABLETS, WITH MEALS
  17. RENAGEL                            /01459901/ [Concomitant]
     Dosage: 2 TABLETS WITH MEALS
  18. SIMVASTATIN [Concomitant]
     Dosage: 40 MG, QD (HS)
  19. LEXAPRO [Concomitant]
     Dosage: 20 MG, QD (HS)
  20. REMERON [Concomitant]
     Dosage: 30 MG, QD (HS)
  21. ZETIA [Concomitant]
     Dosage: 10 MG, QD (HS)
  22. PLAVIX [Concomitant]
     Dosage: 75 MG, QD (HS)
  23. COUMADIN [Concomitant]
     Dosage: 1 MG, QD (HS)
  24. ZINC [Concomitant]
     Dosage: 50 MG, QD
  25. VITAMIN C                          /00008001/ [Concomitant]
     Dosage: ONE EVERY OTHER DAY
  26. MIDODRINE HYDROCHLORIDE [Concomitant]
     Indication: HYPOTENSION
     Dosage: 2.5 - 10 MG, PRN
  27. IMODIUM                            /00384302/ [Concomitant]
     Dosage: 5 IN AM, PRN IN PM
  28. PERCOCET [Concomitant]
     Indication: BACK PAIN
     Dosage: 1-2 TABLETS, PRN
  29. PERCOCET [Concomitant]
     Indication: NECK PAIN
  30. EPOGEN [Concomitant]
     Dosage: GIVEN AT DIALYSIS
  31. CALCITROL                          /00508501/ [Concomitant]
     Dosage: GIVEN AT DIALYSIS

REACTIONS (22)
  - ARTERIOVENOUS FISTULA OCCLUSION [None]
  - ASTHENIA [None]
  - ATRIAL FIBRILLATION [None]
  - ATRIAL THROMBOSIS [None]
  - CATARACT [None]
  - CELLULITIS [None]
  - CONVULSION [None]
  - DEVICE RELATED INFECTION [None]
  - DYSPNOEA [None]
  - ELECTROLYTE IMBALANCE [None]
  - FEMUR FRACTURE [None]
  - GRAFT THROMBOSIS [None]
  - HIP FRACTURE [None]
  - HYPOTENSION [None]
  - NEPHROGENIC SYSTEMIC FIBROSIS [None]
  - OFF LABEL USE [None]
  - PERITONITIS [None]
  - PSEUDOMONAS INFECTION [None]
  - RETINAL VASCULAR THROMBOSIS [None]
  - SLEEP APNOEA SYNDROME [None]
  - THROMBOSIS IN DEVICE [None]
  - WOUND [None]
